FAERS Safety Report 6038590-8 (Version None)
Quarter: 2009Q1

REPORT INFORMATION
  Report Type: 
  Country: None (occurrence: None)
  Receive Date: 20090115
  Receipt Date: 20090107
  Transmission Date: 20090719
  Serious: Yes (Death)
  Sender: FDA-Public Use
  Company Number: B0514032A

PATIENT
  Age: 36 Year
  Sex: Male

DRUGS (5)
  1. ALBUTEROL SULFATE [Suspect]
     Indication: ASTHMA
     Route: 055
     Dates: end: 20080220
  2. SERETIDE [Suspect]
     Indication: ASTHMA
     Route: 055
  3. PREDNISOLONE [Concomitant]
     Route: 048
  4. STEROIDS [Concomitant]
     Route: 048
  5. CETIRIZINE HCL [Concomitant]
     Indication: ASTHMA
     Route: 065

REACTIONS (7)
  - ASTHMA [None]
  - DYSPNOEA [None]
  - INCORRECT DOSE ADMINISTERED [None]
  - PEAK EXPIRATORY FLOW RATE DECREASED [None]
  - PRODUCT QUALITY ISSUE [None]
  - SUDDEN DEATH [None]
  - WHEEZING [None]
